FAERS Safety Report 10362030 (Version 3)
Quarter: 2015Q1

REPORT INFORMATION
  Report Type: Spontaneous
  Country: US (occurrence: US)
  Receive Date: 20140805
  Receipt Date: 20150223
  Transmission Date: 20150720
  Serious: Yes (Hospitalization, Other)
  Sender: FDA-Public Use
  Company Number: US-BAYER-2014-113639

PATIENT
  Age: 27 Year
  Sex: Female
  Weight: 43.84 kg

DRUGS (1)
  1. MIRENA [Suspect]
     Active Substance: LEVONORGESTREL
     Indication: CONTRACEPTION
     Dosage: 20 MCG/24HR, CONT
     Route: 015
     Dates: start: 20071030, end: 20120816

REACTIONS (8)
  - Emotional distress [None]
  - Pain [None]
  - Gastrointestinal injury [None]
  - Mental disorder [None]
  - Depression [None]
  - Uterine perforation [None]
  - Injury [None]
  - Off label use [None]

NARRATIVE: CASE EVENT DATE: 20071030
